FAERS Safety Report 21174888 (Version 1)
Quarter: 2022Q3

REPORT INFORMATION
  Report Type: Spontaneous
  Country: US (occurrence: None)
  Receive Date: 20220805
  Receipt Date: 20220805
  Transmission Date: 20221027
  Serious: No
  Sender: FDA-Public Use
  Company Number: US-ROCHE-2997554

PATIENT
  Sex: Female

DRUGS (1)
  1. ROZLYTREK [Suspect]
     Active Substance: ENTRECTINIB
     Indication: Lung neoplasm malignant
     Route: 048
     Dates: end: 20211222

REACTIONS (6)
  - Constipation [Unknown]
  - Ageusia [Unknown]
  - Somnolence [Unknown]
  - Paraesthesia [Unknown]
  - Burning sensation [Unknown]
  - Pain [Unknown]
